FAERS Safety Report 24848827 (Version 8)
Quarter: 2025Q4

REPORT INFORMATION
  Report Type: Spontaneous
  Country: GB (occurrence: GB)
  Receive Date: 20250116
  Receipt Date: 20251202
  Transmission Date: 20260118
  Serious: Yes (Other)
  Sender: MSN LABORATORIES PRIVATE LIMITED
  Company Number: EU-EMA-DD-20231108-5861859-124829

PATIENT

DRUGS (8)
  1. CLOPIDOGREL [Suspect]
     Active Substance: CLOPIDOGREL BISULFATE
     Indication: Product used for unknown indication
     Dosage: UNK (SECOND DOSE)
     Route: 065
  2. ADALIMUMAB [Suspect]
     Active Substance: ADALIMUMAB
     Indication: Rheumatoid arthritis
     Dosage: 40 MG/0.8 ML IN PRE-FILLED PEN BIWEEKLY
     Route: 058
     Dates: start: 20230911
  3. ADALIMUMAB [Suspect]
     Active Substance: ADALIMUMAB
     Dosage: 40 MILLIGRAM(EVERY TWO WEEKS)
     Route: 058
     Dates: start: 20230911
  4. ADALIMUMAB [Suspect]
     Active Substance: ADALIMUMAB
     Dosage: 120 DF, 40.000DF TIW
     Route: 058
     Dates: start: 20230911
  5. ADALIMUMAB [Suspect]
     Active Substance: ADALIMUMAB
     Dosage: 40 MG/0.8 ML IN PRE-FILLED PEN  BIWEEKLY
     Route: 058
     Dates: start: 20230911
  6. ADALIMUMAB [Suspect]
     Active Substance: ADALIMUMAB
     Dosage: 240 DF, QW (120 DF, QW (40.000DF TIW))
     Route: 065
     Dates: start: 20230911
  7. ADALIMUMAB [Suspect]
     Active Substance: ADALIMUMAB
     Dosage: 120 DOSAGE FORM,3XW,(120 DF, 40.000DF TIW)
     Route: 058
     Dates: start: 20230911
  8. ADALIMUMAB [Suspect]
     Active Substance: ADALIMUMAB
     Dosage: 80 MILLIGRAM,QD,((80 MG, QW (40 MILLIGRAM HYRIMOZ 40 MG))
     Route: 058
     Dates: start: 20230911

REACTIONS (9)
  - Fatigue [Unknown]
  - Constipation [Unknown]
  - Decreased appetite [Recovering/Resolving]
  - Depression [Recovering/Resolving]
  - Gastrooesophageal reflux disease [Not Recovered/Not Resolved]
  - Abdominal pain [Unknown]
  - Hypoglycaemia [Unknown]
  - Contusion [Unknown]
  - Drug ineffective [Unknown]
